FAERS Safety Report 18055171 (Version 2)
Quarter: 2024Q3

REPORT INFORMATION
  Report Type: Spontaneous
  Country: JP (occurrence: JP)
  Receive Date: 20200722
  Receipt Date: 20240709
  Transmission Date: 20241016
  Serious: Yes (Other)
  Sender: TAKEDA
  Company Number: JP-SHIRE-JP202023039

PATIENT

DRUGS (1)
  1. LIALDA [Suspect]
     Active Substance: MESALAMINE
     Indication: Product used for unknown indication
     Dosage: UNK
     Route: 048

REACTIONS (18)
  - Pneumonia [Unknown]
  - Myocarditis [Unknown]
  - Hepatotoxicity [Unknown]
  - Renal impairment [Unknown]
  - Pancreatitis [Unknown]
  - Pericarditis [Unknown]
  - Leukopenia [Unknown]
  - Skin disorder [Unknown]
  - Cough [Unknown]
  - Oedema [Unknown]
  - Aphthous ulcer [Unknown]
  - Drug intolerance [Unknown]
  - Pleurisy [Unknown]
  - Arthralgia [Unknown]
  - Myalgia [Unknown]
  - Headache [Unknown]
  - Fatigue [Unknown]
  - Nausea [Unknown]
